FAERS Safety Report 16264030 (Version 4)
Quarter: 2019Q3

REPORT INFORMATION
  Report Type: Report from Study
  Country: KR (occurrence: KR)
  Receive Date: 20190502
  Receipt Date: 20190808
  Transmission Date: 20191004
  Serious: Yes (Other)
  Sender: FDA-Public Use
  Company Number: KR-009507513-1904KOR013165

PATIENT
  Sex: Female

DRUGS (35)
  1. PEMBROLIZUMAB. [Suspect]
     Active Substance: PEMBROLIZUMAB
     Dosage: QUANTITY: 1, DAYS: 1
     Dates: start: 20190606
  2. DUROGESIC [Concomitant]
     Active Substance: FENTANYL
     Dosage: STRENGTH: 12 MCG/H 5.25 CM2
     Dates: start: 20190422
  3. DUROGESIC [Concomitant]
     Active Substance: FENTANYL
     Dosage: 12 MCG/H 5.25 CM2; QUANTITY: 10, DAYS: 1
     Dates: start: 20190606
  4. RESOLOR [Concomitant]
     Active Substance: PRUCALOPRIDE SUCCINATE
     Dosage: UNK
     Route: 048
     Dates: start: 20190423
  5. PEMBROLIZUMAB. [Suspect]
     Active Substance: PEMBROLIZUMAB
     Dosage: QUANTITY: 2; DAYS 1
     Dates: start: 20190724
  6. INSTILLAGEL [Concomitant]
     Active Substance: CHLORHEXIDINE GLUCONATE\LIDOCAINE HYDROCHLORIDE
     Dosage: UNK
     Dates: start: 20190423
  7. CETAMADOL [Concomitant]
     Dosage: QUANTITY: 1; DAYS: 1
     Dates: start: 20190723, end: 20190724
  8. SODIUM CHLORIDE. [Concomitant]
     Active Substance: SODIUM CHLORIDE
     Dosage: JW NS INJ 50 ML, QUANTITY: 3, DAYS: 1
     Dates: start: 20190606
  9. MEPERIDINE HYDROCHLORIDE. [Concomitant]
     Active Substance: MEPERIDINE HYDROCHLORIDE
     Dosage: UNK; PETHIDINE HCL HANA INJ
     Dates: start: 20190423
  10. IOPAMIRO [Concomitant]
     Active Substance: IOPAMIDOL
     Dosage: UNK; IOPAMIRO INJ 370
     Dates: start: 20190423
  11. PEMBROLIZUMAB. [Suspect]
     Active Substance: PEMBROLIZUMAB
     Dosage: QUANTITY: 2, DAYS: 1
     Dates: start: 20190515, end: 20190515
  12. DULCOLAX S [Concomitant]
     Dosage: UNK
     Dates: start: 20190423
  13. CETAMADOL [Concomitant]
     Dosage: QUANTITY: 3; DAYS: 5
     Dates: start: 20190724
  14. MAGO [Concomitant]
     Dosage: QUANTITY: 1, DAYS: 21
     Dates: start: 20190515, end: 20190515
  15. CIPROFLOXACIN. [Concomitant]
     Active Substance: CIPROFLOXACIN
     Dosage: UNK; CHOONGWAE CIPROFLOXACIN INJ
     Dates: start: 20190423
  16. SODIUM CHLORIDE. [Concomitant]
     Active Substance: SODIUM CHLORIDE
     Dosage: JW NS INJ 1000 ML BAG, QUANTITY: 1, DAYS: 1
     Dates: start: 20190423
  17. DUROGESIC [Concomitant]
     Active Substance: FENTANYL
     Dosage: 25 MCG/H 5.25 CM2, QUANTITY: 10, DAYS: 1
     Dates: start: 20190515, end: 20190515
  18. MAGO [Concomitant]
     Dosage: UNK
     Route: 048
     Dates: start: 20190423
  19. PEMBROLIZUMAB. [Suspect]
     Active Substance: PEMBROLIZUMAB
     Indication: CERVIX CARCINOMA
     Dosage: QUANTITY: 2; DAYS: 1
     Dates: start: 20190423
  20. DUROGESIC [Concomitant]
     Active Substance: FENTANYL
     Dosage: 25 MCG/H 10.5 CM2, QUANTITY: 5, DAYS: 1
     Dates: start: 20190606
  21. RESOLOR [Concomitant]
     Active Substance: PRUCALOPRIDE SUCCINATE
     Dosage: QUANTITY: 1, DAYS: 23
     Dates: start: 20190723, end: 20190724
  22. SODIUM CHLORIDE. [Concomitant]
     Active Substance: SODIUM CHLORIDE
     Dosage: JW NS INJ BAG, QUANTITY: 1, DAYS: 1
     Dates: start: 20190423
  23. SODIUM CHLORIDE. [Concomitant]
     Active Substance: SODIUM CHLORIDE
     Dosage: JW NS INJ, QUANTITY: 1, DAYS: 1
     Dates: start: 20190724
  24. DUROGESIC [Concomitant]
     Active Substance: FENTANYL
     Dosage: STRENGTH: 25MCG/H (FENTANYL 4.2MG); QUANTITY: 5, DOSE: 1
     Dates: start: 20190724
  25. DULCOLAX S [Concomitant]
     Dosage: QUANTITY: 2; DAYS: 21
     Dates: start: 20190724
  26. SODIUM CHLORIDE. [Concomitant]
     Active Substance: SODIUM CHLORIDE
     Dosage: JW NS INJ 1000 ML, QUANTITY: 1, DAYS: 1
     Dates: start: 20190606
  27. SODIUM CHLORIDE. [Concomitant]
     Active Substance: SODIUM CHLORIDE
     Dosage: JW NS INJ 50 ML BAG, QUANTITY: 3, DAYS: 1
     Dates: start: 20190724
  28. DUROGESIC [Concomitant]
     Active Substance: FENTANYL
     Dosage: STRENGTH: 12 MCG/H (FENTANYL 2.1 MG), QUANITY: 5, DAYS: 1
     Dates: start: 20190724
  29. DULCOLAX S [Concomitant]
     Dosage: QUANTITY: 2, DAYS: 30
     Dates: start: 20190606
  30. SODIUM CHLORIDE. [Concomitant]
     Active Substance: SODIUM CHLORIDE
     Dosage: JW NS INJ 50 ML, QUANTITY: 1, DAYS: 1
     Dates: start: 20190515
  31. DUROGESIC [Concomitant]
     Active Substance: FENTANYL
     Dosage: STRENGTH: 12 MCG/H 5.25 CM2
     Dates: start: 20190423
  32. CETAMADOL [Concomitant]
     Dosage: UNK
     Route: 048
     Dates: start: 20190423
  33. DUPHALAC [Concomitant]
     Active Substance: LACTULOSE
     Dosage: UNK
     Route: 048
     Dates: start: 20190423
  34. RESOLOR [Concomitant]
     Active Substance: PRUCALOPRIDE SUCCINATE
     Dosage: QUANTITY: 1; DAYS: 30
     Dates: start: 20190606
  35. SODIUM CHLORIDE. [Concomitant]
     Active Substance: SODIUM CHLORIDE
     Dosage: JW NS INJ 50 ML BAG, QUANTITY 4, DAYS: 1
     Dates: start: 20190423

REACTIONS (3)
  - Product use in unapproved indication [Unknown]
  - Inappropriate schedule of product administration [Unknown]
  - Ureteral stent insertion [Unknown]

NARRATIVE: CASE EVENT DATE: 20190423
